FAERS Safety Report 9336809 (Version 1)
Quarter: 2013Q2

REPORT INFORMATION
  Report Type: Spontaneous
  Country: NL (occurrence: NL)
  Receive Date: 20130607
  Receipt Date: 20130607
  Transmission Date: 20140414
  Serious: Yes (Life-Threatening, Hospitalization, Other)
  Sender: FDA-Public Use
  Company Number: NL-MERCK-1305NLD016220

PATIENT
  Age: 16 Year
  Sex: Female
  Weight: 60 kg

DRUGS (2)
  1. MARVELON [Suspect]
     Indication: CONTRACEPTION
     Dosage: 1 DF, QM
     Route: 048
     Dates: start: 19950101, end: 19950803
  2. FERROUS SULFATE [Concomitant]
     Dosage: 2 DF, QM
     Dates: start: 19920101

REACTIONS (2)
  - Epilepsy [Recovered/Resolved with Sequelae]
  - Thrombosis [Recovered/Resolved with Sequelae]
